FAERS Safety Report 4484718-0 (Version None)
Quarter: 2004Q4

REPORT INFORMATION
  Report Type: 
  Country: None (occurrence: None)
  Receive Date: 20041025
  Receipt Date: 20041020
  Transmission Date: 20050328
  Serious: Yes (Hospitalization)
  Sender: FDA-Public Use
  Company Number: FR-MERCK-0410FRA00079

PATIENT
  Age: 25 Year
  Sex: Male

DRUGS (2)
  1. FOSAMAX [Suspect]
     Route: 048
     Dates: start: 20040607, end: 20040616
  2. CORTICOSTEROIDS (UNSPECIFIED) [Concomitant]
     Indication: BEHCET'S SYNDROME
     Route: 065

REACTIONS (1)
  - ERYTHEMA MULTIFORME [None]
